FAERS Safety Report 18245281 (Version 1)
Quarter: 2020Q3

REPORT INFORMATION
  Report Type: Report from Study
  Country: None (occurrence: US)
  Receive Date: 20200908
  Receipt Date: 20200908
  Transmission Date: 20201103
  Serious: Yes (Disabling)
  Sender: FDA-Public Use
  Company Number: US-ABBVIE-20K-163-3552787-00

PATIENT
  Sex: Female

DRUGS (1)
  1. SKYRIZI [Suspect]
     Active Substance: RISANKIZUMAB-RZAA
     Indication: PSORIASIS
     Route: 058
     Dates: end: 201912

REACTIONS (3)
  - Disability [Unknown]
  - Psoriasis [Recovering/Resolving]
  - Migraine [Unknown]

NARRATIVE: CASE EVENT DATE: 2020
